FAERS Safety Report 23261426 (Version 2)
Quarter: 2025Q4

REPORT INFORMATION
  Report Type: Spontaneous
  Country: US (occurrence: US)
  Receive Date: 20231205
  Receipt Date: 20251127
  Transmission Date: 20260117
  Serious: No
  Sender: ELI LILLY AND COMPANY
  Company Number: US-ELI_LILLY_AND_COMPANY-US202312000910

PATIENT
  Age: 76 Year
  Sex: Female

DRUGS (2)
  1. VERZENIO [Suspect]
     Active Substance: ABEMACICLIB
     Indication: Breast cancer female
     Dosage: UNK UNK, BID
     Route: 048
     Dates: start: 20230302
  2. VERZENIO [Suspect]
     Active Substance: ABEMACICLIB
     Dosage: 150MG, BID
     Route: 048

REACTIONS (3)
  - Lacrimation increased [Unknown]
  - Nephrolithiasis [Unknown]
  - Product dose omission issue [Unknown]
